FAERS Safety Report 16207550 (Version 20)
Quarter: 2023Q2

REPORT INFORMATION
  Report Type: Spontaneous
  Country: US (occurrence: US)
  Receive Date: 20190417
  Receipt Date: 20230517
  Transmission Date: 20230721
  Serious: Yes (Other)
  Sender: FDA-Public Use
  Company Number: US-PFIZER INC-2019123263

PATIENT
  Age: 64 Year
  Sex: Female
  Weight: 57.15 kg

DRUGS (5)
  1. PREMARIN [Suspect]
     Active Substance: ESTROGENS, CONJUGATED
     Indication: Cystitis
     Dosage: 1 G, 2X/WEEK
     Route: 067
  2. PREMARIN [Suspect]
     Active Substance: ESTROGENS, CONJUGATED
     Indication: Prophylaxis urinary tract infection
     Dosage: UNK (2 TO 3 TIMES A WEEK INSERTED VAGINALLY/0.625MG (30 GRAM), PRESCRIBED TO USE 2 TO 3 TIMES/WEEK)
     Route: 067
  3. PREMARIN [Suspect]
     Active Substance: ESTROGENS, CONJUGATED
     Indication: Vulvovaginal dryness
     Dosage: 1 GRAM PER VAGINA TWICE/WEEK
     Route: 067
  4. PREMARIN [Suspect]
     Active Substance: ESTROGENS, CONJUGATED
     Dosage: 0.5 MG (USE THE LEAST AMOUNT WHICH WOULD BE 0.5 MG)
  5. PREGABALIN [Concomitant]
     Active Substance: PREGABALIN
     Dosage: UNK, FOR 3 MONTHS

REACTIONS (13)
  - Expired product administered [Recovering/Resolving]
  - Urinary tract infection [Recovering/Resolving]
  - Off label use [Unknown]
  - Drug effective for unapproved indication [Unknown]
  - Intentional product misuse [Unknown]
  - Off label use [Unknown]
  - Product prescribing issue [Unknown]
  - Pyrexia [Unknown]
  - Illness [Unknown]
  - Dizziness [Unknown]
  - Headache [Unknown]
  - Ear disorder [Unknown]
  - Crying [Unknown]

NARRATIVE: CASE EVENT DATE: 20210501
